FAERS Safety Report 15255726 (Version 1)
Quarter: 2018Q3

REPORT INFORMATION
  Report Type: Spontaneous
  Country: US (occurrence: US)
  Receive Date: 20180808
  Receipt Date: 20180808
  Transmission Date: 20181010
  Serious: No
  Sender: FDA-Public Use
  Company Number: US-SHENZHEN TECHDOW PHARMACEUTICAL CO. LTD-US-2017TEC0000052

PATIENT

DRUGS (1)
  1. HEPARIN SODIUM INJECTION USP, CONTAINING PARABENS, WITH NACL [Suspect]
     Active Substance: HEPARIN SODIUM
     Indication: PRODUCT USED FOR UNKNOWN INDICATION
     Dosage: UNK, 10,000 USP HEPARIN UNITS/10ML

REACTIONS (1)
  - Drug effect incomplete [Unknown]
